FAERS Safety Report 11197446 (Version 1)
Quarter: 2015Q2

REPORT INFORMATION
  Report Type: Spontaneous
  Country: JP (occurrence: JP)
  Receive Date: 20150617
  Receipt Date: 20150617
  Transmission Date: 20150821
  Serious: Yes (Other)
  Sender: FDA-Public Use
  Company Number: JP-GLAXOSMITHKLINE-JP2015JPN081056

PATIENT
  Age: 18 Month
  Sex: Male

DRUGS (4)
  1. CARBOCISTEINE [Concomitant]
     Active Substance: CARBOCYSTEINE
  2. VENTOLINE [Suspect]
     Active Substance: ALBUTEROL
     Dosage: 1.5 DF, QD
     Route: 048
     Dates: start: 20150504
  3. ASVERIN POWDER [Concomitant]
  4. NEUZYM [Concomitant]
     Active Substance: LYSOZYME HYDROCHLORIDE

REACTIONS (1)
  - Granulocyte count decreased [Unknown]
